FAERS Safety Report 5944970-9 (Version None)
Quarter: 2008Q4

REPORT INFORMATION
  Report Type: 
  Country: None (occurrence: None)
  Receive Date: 20081107
  Receipt Date: 20081030
  Transmission Date: 20090506
  Serious: Yes (Hospitalization)
  Sender: FDA-Public Use
  Company Number: JP-MERCK-0811USA00580

PATIENT
  Age: 80 Year
  Sex: Female

DRUGS (3)
  1. HYZAAR [Suspect]
     Indication: HYPERTENSION
     Route: 048
  2. CIBENOL [Suspect]
     Route: 065
  3. INSULIN [Concomitant]
     Route: 065

REACTIONS (1)
  - HYPOGLYCAEMIA [None]
